FAERS Safety Report 24229170 (Version 1)
Quarter: 2024Q3

REPORT INFORMATION
  Report Type: Report from Study
  Country: GB (occurrence: GB)
  Receive Date: 20240820
  Receipt Date: 20240820
  Transmission Date: 20241016
  Serious: Yes (Other)
  Sender: SANDOZ
  Company Number: GB-002147023-NVSC2021GB083352

PATIENT
  Age: 7 Year
  Sex: Male

DRUGS (2)
  1. OMNITROPE [Suspect]
     Active Substance: SOMATROPIN
     Indication: Hypopituitarism
     Dosage: 0.5 MG, QD(10 MG/1.5 ML)
     Route: 058
     Dates: start: 20210407
  2. OMNITROPE [Suspect]
     Active Substance: SOMATROPIN
     Dosage: 0.7 MG, QD
     Route: 058

REACTIONS (4)
  - Haemorrhagic disorder [Unknown]
  - Injection site bruising [Unknown]
  - Injection site pain [Unknown]
  - Injection site mass [Recovered/Resolved]

NARRATIVE: CASE EVENT DATE: 20210407
